APPROVED DRUG PRODUCT: CEFACLOR
Active Ingredient: CEFACLOR
Strength: EQ 125MG BASE/5ML
Dosage Form/Route: FOR SUSPENSION;ORAL
Application: A062206 | Product #001
Applicant: FACTA FARMACEUTICI SPA
Approved: Approved Prior to Jan 1, 1982 | RLD: No | RS: No | Type: DISCN